FAERS Safety Report 7830997-9 (Version None)
Quarter: 2011Q4

REPORT INFORMATION
  Report Type: 
  Country: None (occurrence: None)
  Receive Date: 20111021
  Receipt Date: 20111017
  Transmission Date: 20120403
  Serious: Yes (Other)
  Sender: FDA-Public Use
  Company Number: DK-PFIZER INC-2011227790

PATIENT
  Age: 75 Year
  Sex: Female

DRUGS (2)
  1. CENTYL [Concomitant]
     Dosage: 1 TABLET DAILY
  2. XALATAN [Suspect]

REACTIONS (2)
  - CATARACT [None]
  - HAIR COLOUR CHANGES [None]
